FAERS Safety Report 14861052 (Version 3)
Quarter: 2018Q3

REPORT INFORMATION
  Report Type: Report from Study
  Country: TH (occurrence: TH)
  Receive Date: 20180508
  Receipt Date: 20180705
  Transmission Date: 20181010
  Serious: Yes (Death, Hospitalization, Other)
  Sender: FDA-Public Use
  Company Number: TH-TAKEDA-2018MPI003410

PATIENT
  Age: 65 Year
  Sex: Female

DRUGS (3)
  1. VELCADE [Suspect]
     Active Substance: BORTEZOMIB
     Indication: PLASMA CELL MYELOMA
     Dosage: 2.25 MG, QD
     Route: 065
     Dates: start: 20180102, end: 20180321
  2. CYCLOPHOSPHAMIDE. [Concomitant]
     Active Substance: CYCLOPHOSPHAMIDE
     Dosage: UNK
     Route: 065
  3. DEXAMETHASONE. [Concomitant]
     Active Substance: DEXAMETHASONE
     Dosage: UNK
     Route: 065

REACTIONS (8)
  - Asthenia [Recovering/Resolving]
  - Skull fracture [Fatal]
  - Meningitis [Fatal]
  - Haemorrhage intracranial [Fatal]
  - Seizure [Unknown]
  - Infection [Fatal]
  - Blood glucose increased [Not Recovered/Not Resolved]
  - Sepsis [Recovered/Resolved]

NARRATIVE: CASE EVENT DATE: 20180327
